FAERS Safety Report 24294283 (Version 1)
Quarter: 2024Q3

REPORT INFORMATION
  Report Type: Report from Study
  Country: US (occurrence: US)
  Receive Date: 20240906
  Receipt Date: 20240906
  Transmission Date: 20241017
  Serious: Yes (Other)
  Sender: ABBVIE
  Company Number: US-ABBVIE-5866917

PATIENT
  Age: 74 Year
  Sex: Male

DRUGS (1)
  1. SKYRIZI [Suspect]
     Active Substance: RISANKIZUMAB-RZAA
     Indication: Psoriasis
     Route: 058
     Dates: start: 20230825

REACTIONS (4)
  - Cardiac disorder [Unknown]
  - Blood calcium increased [Recovering/Resolving]
  - Low density lipoprotein increased [Recovering/Resolving]
  - Arteriosclerosis [Unknown]

NARRATIVE: CASE EVENT DATE: 20240101
